FAERS Safety Report 6627210-7 (Version None)
Quarter: 2010Q1

REPORT INFORMATION
  Report Type: 
  Country: None (occurrence: None)
  Receive Date: 20100301
  Receipt Date: 20090107
  Transmission Date: 20100710
  Serious: Yes (Hospitalization)
  Sender: FDA-Public Use
  Company Number: RB-7894-2009

PATIENT
  Sex: Male

DRUGS (1)
  1. SUBUTEX [Suspect]
     Indication: DRUG DEPENDENCE
     Dosage: 8 MG QD TRANSPLACENTAL
     Route: 064
     Dates: start: 20080101, end: 20081207

REACTIONS (1)
  - DRUG WITHDRAWAL SYNDROME NEONATAL [None]
